FAERS Safety Report 8239688-6 (Version None)
Quarter: 2012Q1

REPORT INFORMATION
  Report Type: 
  Country: None (occurrence: None)
  Receive Date: 20120328
  Receipt Date: 20120321
  Transmission Date: 20120608
  Serious: Yes (Hospitalization)
  Sender: FDA-Public Use
  Company Number: FR-UCBSA-053858

PATIENT
  Age: 12 Year
  Sex: Male

DRUGS (5)
  1. VIMPAT [Suspect]
     Indication: INFANTILE SPASMS
     Route: 048
  2. VIMPAT [Suspect]
     Route: 048
  3. VIMPAT [Suspect]
     Route: 048
     Dates: start: 20110101
  4. URBANYL [Concomitant]
     Indication: INFANTILE SPASMS
     Route: 048
  5. ZONEGRAN [Concomitant]
     Indication: INFANTILE SPASMS
     Route: 048

REACTIONS (2)
  - HAEMOPTYSIS [None]
  - LUNG ABSCESS [None]
